FAERS Safety Report 8935517 (Version 1)
Quarter: 2012Q4

REPORT INFORMATION
  Report Type: 
  Country: US (occurrence: None)
  Receive Date: 20121128
  Receipt Date: 20121128
  Transmission Date: 20130627
  Serious: Yes (Hospitalization)
  Sender: FDA-Public Use
  Company Number: None

PATIENT
  Sex: Male
  Weight: 85.2 kg

DRUGS (1)
  1. CISPLATIN [Suspect]

REACTIONS (5)
  - Nausea [None]
  - Vomiting [None]
  - Drug dose omission [None]
  - Constipation [None]
  - Diarrhoea [None]
